FAERS Safety Report 24889748 (Version 1)
Quarter: 2025Q1

REPORT INFORMATION
  Report Type: Spontaneous
  Country: CN (occurrence: CN)
  Receive Date: 20250127
  Receipt Date: 20250127
  Transmission Date: 20250408
  Serious: Yes (Other)
  Sender: ROCHE
  Company Number: CN-ROCHE-10000187135

PATIENT
  Age: 69 Year
  Sex: Male
  Weight: 53.5 kg

DRUGS (27)
  1. MABTHERA [Suspect]
     Active Substance: RITUXIMAB
     Indication: Diffuse large B-cell lymphoma
     Route: 040
     Dates: start: 20241206
  2. MABTHERA [Suspect]
     Active Substance: RITUXIMAB
     Indication: Hypoalbuminaemia
  3. MABTHERA [Suspect]
     Active Substance: RITUXIMAB
     Indication: Hypokalaemia
  4. MABTHERA [Suspect]
     Active Substance: RITUXIMAB
     Indication: Hyponatraemia
  5. MABTHERA [Suspect]
     Active Substance: RITUXIMAB
     Indication: Electrolyte imbalance
  6. MABTHERA [Suspect]
     Active Substance: RITUXIMAB
     Indication: Pneumonia
  7. MABTHERA [Suspect]
     Active Substance: RITUXIMAB
     Indication: Pneumonia fungal
  8. MABTHERA [Suspect]
     Active Substance: RITUXIMAB
     Indication: Hepatic failure
  9. MABTHERA [Suspect]
     Active Substance: RITUXIMAB
     Indication: Anal infection
  10. OXALIPLATIN [Suspect]
     Active Substance: OXALIPLATIN
     Indication: Diffuse large B-cell lymphoma
     Route: 040
     Dates: start: 20241207
  11. OXALIPLATIN [Suspect]
     Active Substance: OXALIPLATIN
     Indication: Hypoalbuminaemia
  12. OXALIPLATIN [Suspect]
     Active Substance: OXALIPLATIN
     Indication: Hypokalaemia
  13. OXALIPLATIN [Suspect]
     Active Substance: OXALIPLATIN
     Indication: Hyponatraemia
  14. OXALIPLATIN [Suspect]
     Active Substance: OXALIPLATIN
     Indication: Electrolyte imbalance
  15. OXALIPLATIN [Suspect]
     Active Substance: OXALIPLATIN
     Indication: Pneumonia
  16. OXALIPLATIN [Suspect]
     Active Substance: OXALIPLATIN
     Indication: Pneumonia fungal
  17. OXALIPLATIN [Suspect]
     Active Substance: OXALIPLATIN
     Indication: Hepatic failure
  18. OXALIPLATIN [Suspect]
     Active Substance: OXALIPLATIN
     Indication: Anal infection
  19. GEMCITABINE HYDROCHLORIDE [Suspect]
     Active Substance: GEMCITABINE HYDROCHLORIDE
     Indication: Diffuse large B-cell lymphoma
     Route: 040
     Dates: start: 20241207
  20. GEMCITABINE HYDROCHLORIDE [Suspect]
     Active Substance: GEMCITABINE HYDROCHLORIDE
     Indication: Hypokalaemia
  21. GEMCITABINE HYDROCHLORIDE [Suspect]
     Active Substance: GEMCITABINE HYDROCHLORIDE
     Indication: Hyponatraemia
  22. GEMCITABINE HYDROCHLORIDE [Suspect]
     Active Substance: GEMCITABINE HYDROCHLORIDE
     Indication: Electrolyte imbalance
  23. GEMCITABINE HYDROCHLORIDE [Suspect]
     Active Substance: GEMCITABINE HYDROCHLORIDE
     Indication: Pneumonia
  24. GEMCITABINE HYDROCHLORIDE [Suspect]
     Active Substance: GEMCITABINE HYDROCHLORIDE
     Indication: Pneumonia fungal
  25. GEMCITABINE HYDROCHLORIDE [Suspect]
     Active Substance: GEMCITABINE HYDROCHLORIDE
     Indication: Hepatic failure
  26. GEMCITABINE HYDROCHLORIDE [Suspect]
     Active Substance: GEMCITABINE HYDROCHLORIDE
     Indication: Anal infection
  27. GEMCITABINE HYDROCHLORIDE [Suspect]
     Active Substance: GEMCITABINE HYDROCHLORIDE
     Indication: Hypoalbuminaemia

REACTIONS (1)
  - Agranulocytosis [Recovering/Resolving]

NARRATIVE: CASE EVENT DATE: 20241225
